FAERS Safety Report 11660919 (Version 1)
Quarter: 2015Q4

REPORT INFORMATION
  Report Type: Spontaneous
  Country: US (occurrence: None)
  Receive Date: 20151026
  Receipt Date: 20151026
  Transmission Date: 20160304
  Serious: Yes (Other)
  Sender: FDA-Public Use
  Company Number: US-MDT-ADR-2015-02024

PATIENT
  Age: 45 Year
  Sex: Female

DRUGS (2)
  1. MORPHINE INTRATHECAL 10MG/ML [Suspect]
     Active Substance: MORPHINE
     Indication: POST LAMINECTOMY SYNDROME
     Dosage: 6.8MG/DAY
  2. BACLOFEN INTRATHECAL 60MCG/ML [Suspect]
     Active Substance: BACLOFEN
     Indication: POST LAMINECTOMY SYNDROME
     Dosage: 40.8MCG/DAY

REACTIONS (2)
  - Paraesthesia [None]
  - Cauda equina syndrome [None]
